FAERS Safety Report 20248041 (Version 1)
Quarter: 2021Q4

REPORT INFORMATION
  Report Type: Spontaneous
  Country: US (occurrence: US)
  Receive Date: 20211229
  Receipt Date: 20211229
  Transmission Date: 20220303
  Serious: Yes (Other)
  Sender: FDA-Public Use
  Company Number: US-LUPIN PHARMACEUTICALS INC.-2021-25731

PATIENT
  Age: 38 Year
  Sex: Female

DRUGS (6)
  1. METFORMIN [Suspect]
     Active Substance: METFORMIN HYDROCHLORIDE
     Indication: Gestational diabetes
     Dosage: UNK
     Route: 065
  2. MISOPROSTOL [Suspect]
     Active Substance: MISOPROSTOL
     Indication: Labour induction
     Dosage: UNK (6 DOSES)
     Route: 048
  3. INSULIN NOS [Suspect]
     Active Substance: INSULIN NOS
     Indication: Gestational diabetes
     Dosage: UNK
     Route: 065
  4. HYDRALAZINE [Suspect]
     Active Substance: HYDRALAZINE HYDROCHLORIDE
     Indication: Gestational hypertension
     Dosage: UNK
     Route: 065
  5. OXYTOCIN [Suspect]
     Active Substance: OXYTOCIN
     Indication: Labour induction
     Dosage: UNK (LOW DOSE)
     Route: 065
  6. OXYTOCIN [Suspect]
     Active Substance: OXYTOCIN
     Dosage: UNK (AUGMENTED DOSE)
     Route: 065

REACTIONS (3)
  - Pre-eclampsia [Unknown]
  - Off label use [Unknown]
  - Maternal exposure during pregnancy [Unknown]
